FAERS Safety Report 5977703-0 (Version None)
Quarter: 2008Q4

REPORT INFORMATION
  Report Type: 
  Country: None (occurrence: None)
  Receive Date: 20081203
  Receipt Date: 20081126
  Transmission Date: 20090506
  Serious: Yes (Hospitalization)
  Sender: FDA-Public Use
  Company Number: GB-ROCHE-596890

PATIENT
  Sex: Female
  Weight: 99.7 kg

DRUGS (11)
  1. ORLISTAT [Suspect]
     Indication: OBESITY
     Route: 048
     Dates: start: 20081027
  2. VENTOLIN [Concomitant]
     Indication: ASTHMA
     Dosage: GIVEN 100 UG PUFF UP TO 8X DAILY.
     Route: 055
  3. VENTOLIN [Concomitant]
     Indication: ASTHMA
     Dosage: REPORTED AS VENTOLIN NEBULISER SOLUTION.
     Route: 055
  4. PREDNISOLONE [Concomitant]
     Indication: STEROID THERAPY
     Route: 048
  5. LANSOPRAZOLE [Concomitant]
     Dosage: REPORTED AS NANSOPRAZOLE.
     Route: 048
  6. AZOPT [Concomitant]
     Indication: GLAUCOMA
     Dosage: EYE DROP, GIVEN TOPICAL RIGHT EYE.
     Route: 061
  7. TRAVATAN [Concomitant]
     Indication: GLAUCOMA
     Dosage: EYE DROP, GIVEN TOPICAL RIGHT EYE.
     Route: 061
  8. FUROSEMIDE [Concomitant]
     Dosage: REPORTED AS FRUOSEMIDE.
     Route: 048
  9. ALENDRONIC ACID [Concomitant]
     Dosage: INDICATION: BONES.
     Route: 048
  10. ALPHAGAN [Concomitant]
     Indication: GLAUCOMA
     Dosage: EYE DROP, GIVEN TOPICAL RIGHT EYE.
     Route: 061
  11. SYMBICORT [Concomitant]
     Indication: STEROID THERAPY
     Dosage: GIVEN 3X 400/12 AM AND 2X 400/12 PM.

REACTIONS (2)
  - ASTHMA [None]
  - LOWER RESPIRATORY TRACT INFECTION [None]
